FAERS Safety Report 5153029-2 (Version None)
Quarter: 2006Q4

REPORT INFORMATION
  Report Type: 
  Country: None (occurrence: None)
  Receive Date: 20061113
  Receipt Date: 20061026
  Transmission Date: 20070319
  Serious: Yes (Hospitalization)
  Sender: FDA-Public Use
  Company Number: 2006RR-04272

PATIENT
  Age: 63 Year
  Sex: Male

DRUGS (4)
  1. SIMVASTATIN [Suspect]
     Indication: CORONARY ARTERY DISEASE
     Dosage: 40 MG, ORAL
     Route: 048
     Dates: start: 20060606
  2. CLOPIDOGREL [Concomitant]
  3. ENALAPRIL MALEATE [Concomitant]
  4. TRAMADOL HCL [Concomitant]

REACTIONS (8)
  - BURNING SENSATION [None]
  - DIARRHOEA [None]
  - ERYTHEMA [None]
  - GINGIVITIS [None]
  - GLOSSODYNIA [None]
  - ORAL DISCOMFORT [None]
  - SKIN EXFOLIATION [None]
  - TONGUE DISORDER [None]
